FAERS Safety Report 7210674 (Version 3)
Quarter: 2014Q2

REPORT INFORMATION
  Report Type: Report from Study
  Country: DE (occurrence: DE)
  Receive Date: 20091210
  Receipt Date: 20140603
  Transmission Date: 20141212
  Serious: Yes (Hospitalization)
  Sender: FDA-Public Use
  Company Number: PHHO2009DE13593

PATIENT
  Sex: 0

DRUGS (1)
  1. EVEROLIMUS [Suspect]
     Indication: HEART TRANSPLANT
     Dosage: 1 MG, BID
     Route: 048
     Dates: start: 20091012

REACTIONS (2)
  - Impaired healing [Recovering/Resolving]
  - Wound [Recovering/Resolving]
